FAERS Safety Report 11258511 (Version 1)
Quarter: 2015Q3

REPORT INFORMATION
  Report Type: Spontaneous
  Country: PL (occurrence: PL)
  Receive Date: 20150710
  Receipt Date: 20150710
  Transmission Date: 20151125
  Serious: Yes (Other)
  Sender: FDA-Public Use
  Company Number: PL-SUN PHARMACEUTICAL INDUSTRIES LTD-2015R1-100226

PATIENT
  Age: 50 Year
  Sex: Female

DRUGS (4)
  1. ARIPIPRAZOLE. [Suspect]
     Active Substance: ARIPIPRAZOLE
     Indication: SCHIZOPHRENIA
     Dosage: 7.5 MG, QD
     Route: 065
  2. ARIPIPRAZOLE. [Suspect]
     Active Substance: ARIPIPRAZOLE
     Indication: SCHIZOPHRENIA
     Dosage: 15 MG, QD
     Route: 048
  3. CLOZAPINE. [Suspect]
     Active Substance: CLOZAPINE
     Dosage: 275 MG, DAILY (25MGQ. A.M., 250MG O.N.)
     Route: 065
  4. CLOZAPINE. [Suspect]
     Active Substance: CLOZAPINE
     Indication: SCHIZOPHRENIA
     Dosage: 300 MG, DAILY (50 MG A.M, 250 MG O.N.)
     Route: 065

REACTIONS (8)
  - Type 2 diabetes mellitus [Recovering/Resolving]
  - Akathisia [Unknown]
  - Abulia [Unknown]
  - Restlessness [Unknown]
  - Disease recurrence [Recovering/Resolving]
  - Increased appetite [Unknown]
  - Apathy [Unknown]
  - Hypersomnia [Unknown]
